FAERS Safety Report 20752166 (Version 9)
Quarter: 2023Q2

REPORT INFORMATION
  Report Type: Report from Study
  Country: US (occurrence: US)
  Receive Date: 20220426
  Receipt Date: 20230623
  Transmission Date: 20230721
  Serious: No
  Sender: FDA-Public Use
  Company Number: US-NOVARTISTESTPH-NVSC2022US095809

PATIENT
  Sex: Female
  Weight: 67.574 kg

DRUGS (8)
  1. TREPROSTINIL [Suspect]
     Active Substance: TREPROSTINIL
     Indication: Pulmonary arterial hypertension
     Dosage: 29.5 NG/KG/ MIN, CONT (CONCENTRATION: 5 MG/ML))
     Route: 058
     Dates: start: 20220303
  2. TREPROSTINIL [Suspect]
     Active Substance: TREPROSTINIL
     Dosage: 44.5 NG/KG/ MI N, CONT (CONCENTRATION: 5 MG/ML)
     Route: 058
  3. TREPROSTINIL [Suspect]
     Active Substance: TREPROSTINIL
     Dosage: 60 NG/KG/ MIN, CONT (CONCENTRATION: 2.5 MG/ML)
     Route: 042
     Dates: start: 20220808
  4. TREPROSTINIL [Suspect]
     Active Substance: TREPROSTINIL
     Dosage: 70 NG/KG/ MIN, CONT
     Route: 042
  5. TREPROSTINIL [Suspect]
     Active Substance: TREPROSTINIL
     Dosage: 70 NG/KG/MIN, CONT (CONCENTRATION: 2.5 MG/ML)
     Route: 042
     Dates: start: 20220808
  6. SILDENAFIL CITRATE [Concomitant]
     Active Substance: SILDENAFIL CITRATE
     Indication: Product used for unknown indication
     Dosage: UNK
     Route: 065
  7. AMBRISENTAN [Concomitant]
     Active Substance: AMBRISENTAN
     Indication: Product used for unknown indication
     Dosage: UNK
     Route: 065
  8. REMODULIN [Concomitant]
     Active Substance: TREPROSTINIL
     Indication: Product used for unknown indication
     Dosage: UNK
     Route: 065

REACTIONS (10)
  - Nasopharyngitis [Unknown]
  - Frequent bowel movements [Unknown]
  - Abdominal discomfort [Unknown]
  - Sleep deficit [Unknown]
  - Confusional state [Unknown]
  - Pain in jaw [Unknown]
  - Diarrhoea [Unknown]
  - Nausea [Unknown]
  - Myalgia [Unknown]
  - Infusion site pain [Unknown]
